FAERS Safety Report 6250000-4 (Version None)
Quarter: 2009Q2

REPORT INFORMATION
  Report Type: 
  Country: None (occurrence: None)
  Receive Date: 20090625
  Receipt Date: 20090619
  Transmission Date: 20091009
  Serious: Yes (Life-Threatening, Other)
  Sender: FDA-Public Use
  Company Number: SPV1-2009-00897

PATIENT
  Age: 4 Year
  Sex: Male
  Weight: 25 kg

DRUGS (3)
  1. ELAPRASE [Suspect]
     Indication: MUCOPOLYSACCHARIDOSIS II
     Dosage: UNK, 1X/WEEK, IV DRIP
     Route: 041
     Dates: start: 20090204
  2. SUPRASTIN (CHLOROPYRAMINE HYDROCHLORIDE) [Concomitant]
  3. DEXAMETHASONE [Concomitant]

REACTIONS (9)
  - ANAPHYLACTIC REACTION [None]
  - ANAPHYLACTIC SHOCK [None]
  - BRONCHIAL OBSTRUCTION [None]
  - CONJUNCTIVAL HYPERAEMIA [None]
  - DYSPNOEA [None]
  - EYE PRURITUS [None]
  - FACE OEDEMA [None]
  - INFUSION RELATED REACTION [None]
  - URTICARIA [None]
